FAERS Safety Report 4652179-4 (Version None)
Quarter: 2005Q2

REPORT INFORMATION
  Report Type: 
  Country: None (occurrence: None)
  Receive Date: 20050504
  Receipt Date: 20050426
  Transmission Date: 20051028
  Serious: Yes (Hospitalization)
  Sender: FDA-Public Use
  Company Number: GB-BRISTOL-MYERS SQUIBB COMPANY-12946422

PATIENT
  Age: 63 Year
  Sex: Male

DRUGS (11)
  1. METHOTREXATE [Suspect]
     Indication: PYODERMA GANGRENOSUM
     Route: 048
  2. KENALOG [Suspect]
     Indication: PYODERMA GANGRENOSUM
     Route: 026
  3. METHYLPREDNISOLONE [Suspect]
     Indication: PYODERMA GANGRENOSUM
     Dosage: DOSE:  1G/DAY FOR 3 DAYS PER COURSE
     Route: 042
  4. PREDNISOLONE [Suspect]
     Indication: PYODERMA GANGRENOSUM
     Dosage: DOSE:  40-80 MG/DAY
     Route: 048
  5. CLOBETASOL [Suspect]
     Indication: PYODERMA GANGRENOSUM
     Route: 061
  6. IMMUNOGLOBULIN [Suspect]
     Indication: PYODERMA GANGRENOSUM
     Dosage: DOSE:  2G/KG/CYCLE, 2 COURSES
     Route: 042
  7. NEORAL [Suspect]
     Indication: PYODERMA GANGRENOSUM
  8. THALIDOMIDE [Suspect]
     Indication: PYODERMA GANGRENOSUM
  9. CELLCEPT [Suspect]
     Indication: PYODERMA GANGRENOSUM
  10. CLOFAZIMINE [Suspect]
     Indication: PYODERMA GANGRENOSUM
  11. NEUPOGEN [Suspect]
     Indication: PYODERMA GANGRENOSUM
     Route: 058

REACTIONS (5)
  - DIABETES MELLITUS [None]
  - DRUG INEFFECTIVE [None]
  - HAEMOGLOBIN DECREASED [None]
  - PEPTIC ULCER PERFORATION [None]
  - WOUND DEHISCENCE [None]
